FAERS Safety Report 19526772 (Version 2)
Quarter: 2021Q4

REPORT INFORMATION
  Report Type: Report from Study
  Country: ZA (occurrence: ZA)
  Receive Date: 20210713
  Receipt Date: 20211130
  Transmission Date: 20220303
  Serious: Yes (Death)
  Sender: FDA-Public Use
  Company Number: ZA-NOVOPROD-827624

PATIENT
  Sex: Male

DRUGS (7)
  1. FUROSEMIDE [Concomitant]
     Active Substance: FUROSEMIDE
     Indication: Diuretic therapy
     Dosage: 40 MG
     Route: 048
     Dates: end: 202106
  2. ALLOPURINOL [Concomitant]
     Active Substance: ALLOPURINOL
     Indication: Prophylaxis
     Dosage: 300 MG
     Route: 048
     Dates: end: 202106
  3. BISOPROLOL [Concomitant]
     Active Substance: BISOPROLOL
     Indication: Hypertension
     Dosage: 2.50 MG
     Route: 048
     Dates: end: 202106
  4. SIMVASTATIN [Concomitant]
     Active Substance: SIMVASTATIN
     Indication: Blood cholesterol abnormal
     Dosage: 20 MG
     Route: 048
     Dates: end: 202106
  5. AMIODARONE [Concomitant]
     Active Substance: AMIODARONE
     Indication: Cardiac disorder
     Dosage: 200 MG
     Route: 048
     Dates: end: 202106
  6. ENAP [ENALAPRILAT] [Concomitant]
     Indication: Hypertension
     Dosage: 20 MG
     Route: 048
     Dates: end: 202106
  7. INSULIN ASPART [Suspect]
     Active Substance: INSULIN ASPART
     Indication: Diabetes mellitus
     Dosage: UNK
     Route: 058
     Dates: end: 202106

REACTIONS (1)
  - Organ failure [Fatal]
